FAERS Safety Report 23466548 (Version 1)
Quarter: 2024Q1

REPORT INFORMATION
  Report Type: Other
  Country: US (occurrence: US)
  Receive Date: 20240201
  Receipt Date: 20240201
  Transmission Date: 20240410
  Serious: Yes (Other)
  Sender: FDA-Public Use
  Company Number: US-BoehringerIngelheim-2024-BI-004599

PATIENT
  Age: 44 Year
  Sex: Female

DRUGS (3)
  1. ALTEPLASE [Suspect]
     Active Substance: ALTEPLASE
     Indication: Device related thrombosis
     Route: 065
  2. HEPARIN [Concomitant]
     Active Substance: HEPARIN SODIUM
     Indication: Product used for unknown indication
  3. WARFARIN [Concomitant]
     Active Substance: WARFARIN

REACTIONS (6)
  - Cerebellar haemorrhage [Unknown]
  - Haemorrhagic ovarian cyst [Unknown]
  - Ovarian cyst ruptured [Unknown]
  - Haemoperitoneum [Unknown]
  - Bacteraemia [Recovered/Resolved]
  - Off label use [Unknown]
